FAERS Safety Report 25221362 (Version 2)
Quarter: 2025Q2

REPORT INFORMATION
  Report Type: Spontaneous
  Country: SA (occurrence: SA)
  Receive Date: 20250421
  Receipt Date: 20250507
  Transmission Date: 20250717
  Serious: Yes (Other)
  Sender: PFIZER
  Company Number: SA-PFIZER INC-PV202500045511

PATIENT
  Age: 37 Year
  Sex: Female

DRUGS (3)
  1. TUKYSA [Suspect]
     Active Substance: TUCATINIB
     Indication: Breast cancer metastatic
     Dates: start: 202406, end: 202502
  2. TRASTUZUMAB [Suspect]
     Active Substance: TRASTUZUMAB
     Indication: Breast cancer metastatic
     Dates: start: 202406, end: 202502
  3. CAPECITABINE [Suspect]
     Active Substance: CAPECITABINE
     Indication: Breast cancer metastatic
     Dates: end: 20241009

REACTIONS (9)
  - Neutropenia [Unknown]
  - Seizure [Unknown]
  - Malignant neoplasm progression [Unknown]
  - Breast cancer metastatic [Unknown]
  - Metastases to central nervous system [Unknown]
  - Metastases to meninges [Unknown]
  - Diarrhoea [Unknown]
  - Hand-foot-and-mouth disease [Unknown]
  - Fatigue [Unknown]

NARRATIVE: CASE EVENT DATE: 20250101
